FAERS Safety Report 5764677-0 (Version None)
Quarter: 2008Q2

REPORT INFORMATION
  Report Type: 
  Country: None (occurrence: None)
  Receive Date: 20080611
  Receipt Date: 20080606
  Transmission Date: 20081010
  Serious: Yes (Life-Threatening, Hospitalization, Other)
  Sender: FDA-Public Use
  Company Number: PHHY2008AR08222

PATIENT
  Age: 61 Year
  Sex: Female

DRUGS (10)
  1. CLOZAPINE [Suspect]
  2. INOTROPICS [Concomitant]
  3. NEUPOGEN [Concomitant]
  4. NORADRENALINE [Concomitant]
     Dosage: 0.40 KG/MIN
  5. NORADRENALINE [Concomitant]
     Dosage: 0.10 KG/MIN
  6. VORICONAZOLE [Concomitant]
     Indication: BRONCHOPULMONARY ASPERGILLOSIS
  7. ANFOTERICINA B [Concomitant]
     Indication: BRONCHOPULMONARY ASPERGILLOSIS
  8. VANCOMYCIN [Concomitant]
  9. IMIPENEM [Concomitant]
     Dosage: UNK
  10. CIPROFLOXACIN HCL [Concomitant]
     Dosage: UNK

REACTIONS (19)
  - AGRANULOCYTOSIS [None]
  - ALTERED STATE OF CONSCIOUSNESS [None]
  - ASPIRATION BONE MARROW ABNORMAL [None]
  - BRONCHOPULMONARY ASPERGILLOSIS [None]
  - CELLULITIS [None]
  - HAEMODYNAMIC INSTABILITY [None]
  - INFLUENZA [None]
  - INTESTINAL OBSTRUCTION [None]
  - LEUKOPENIA [None]
  - MECHANICAL VENTILATION [None]
  - METABOLIC ACIDOSIS [None]
  - NEUTROPHIL COUNT DECREASED [None]
  - PARENTERAL NUTRITION [None]
  - PERITONEAL DIALYSIS [None]
  - PNEUMONIA [None]
  - RENAL FAILURE ACUTE [None]
  - TRACHEOSTOMY [None]
  - WHITE BLOOD CELL COUNT DECREASED [None]
  - WHITE BLOOD CELL COUNT INCREASED [None]
